FAERS Safety Report 6309575-9 (Version None)
Quarter: 2009Q3

REPORT INFORMATION
  Report Type: 
  Country: None (occurrence: None)
  Receive Date: 20090814
  Receipt Date: 20090804
  Transmission Date: 20100115
  Serious: Yes (Other)
  Sender: FDA-Public Use
  Company Number: PHHY2009GB27165

PATIENT
  Sex: Male

DRUGS (5)
  1. CLOZARIL [Suspect]
     Indication: SCHIZOPHRENIA
     Dosage: UNK
     Route: 048
     Dates: start: 20030505
  2. CLOZARIL [Suspect]
     Dosage: 575 MG/DAY
     Route: 048
  3. AMISULPRIDE [Concomitant]
     Dosage: 800 MG, UNK
     Route: 048
  4. LITHIUM [Concomitant]
     Dosage: 1 G, UNK
     Route: 048
  5. HYOSCINE [Concomitant]
     Route: 048

REACTIONS (6)
  - C-REACTIVE PROTEIN INCREASED [None]
  - ELECTROCARDIOGRAM QT PROLONGED [None]
  - EOSINOPHIL COUNT INCREASED [None]
  - FIBRIN D DIMER INCREASED [None]
  - PYREXIA [None]
  - WEIGHT INCREASED [None]
